FAERS Safety Report 6568064-7 (Version None)
Quarter: 2010Q1

REPORT INFORMATION
  Report Type: 
  Country: None (occurrence: None)
  Receive Date: 20100129
  Receipt Date: 20100113
  Transmission Date: 20100710
  Serious: Yes (Death)
  Sender: FDA-Public Use
  Company Number: 2009AC000420

PATIENT
  Age: 76 Year
  Sex: Female

DRUGS (21)
  1. DIGOXIN [Suspect]
     Dosage: .125 MG;QD;PO
     Route: 048
  2. ELITE [Concomitant]
  3. EVISTA [Concomitant]
  4. OXAZEPAM [Concomitant]
  5. GLUCOPHAGE [Concomitant]
  6. LASIX [Concomitant]
  7. PREVACID [Concomitant]
  8. VITAMIN D [Concomitant]
  9. PRINIVIL [Concomitant]
  10. LANTUS [Concomitant]
  11. HYDROCHLOROTHIAZIDE [Concomitant]
  12. COUMADIN [Concomitant]
  13. PREVACID [Concomitant]
  14. FUROSEMIDE [Concomitant]
  15. EVISTA [Concomitant]
  16. LISINOPRIL [Concomitant]
  17. METFORMIN [Concomitant]
  18. GLYBURIDE [Concomitant]
  19. ENDURONYL [Concomitant]
  20. ZELNORM [Concomitant]
  21. VIT. E [Concomitant]

REACTIONS (13)
  - ANXIETY [None]
  - ATRIAL FIBRILLATION [None]
  - DRUG TOXICITY [None]
  - DYSPNOEA [None]
  - ELECTROCARDIOGRAM ABNORMAL [None]
  - FATIGUE [None]
  - HYPERLIPIDAEMIA [None]
  - HYPERSENSITIVITY [None]
  - IRRITABLE BOWEL SYNDROME [None]
  - OSTEOARTHRITIS [None]
  - PAIN [None]
  - PEPTIC ULCER [None]
  - PERICARDIAL EFFUSION [None]
